FAERS Safety Report 4932419-4 (Version None)
Quarter: 2006Q1

REPORT INFORMATION
  Report Type: 
  Country: None (occurrence: None)
  Receive Date: 20060301
  Receipt Date: 20060213
  Transmission Date: 20060701
  Serious: Yes (Other)
  Sender: FDA-Public Use
  Company Number: 8015017

PATIENT
  Sex: Female

DRUGS (3)
  1. KEPPRA [Suspect]
  2. VALPROATE SODIUM [Concomitant]
  3. CLOBAZAM [Concomitant]

REACTIONS (1)
  - STATUS EPILEPTICUS [None]
